FAERS Safety Report 17027234 (Version 1)
Quarter: 2019Q4

REPORT INFORMATION
  Report Type: Spontaneous
  Country: US (occurrence: US)
  Receive Date: 20191113
  Receipt Date: 20191113
  Transmission Date: 20200122
  Serious: No
  Sender: FDA-Public Use
  Company Number: US-BAYER-2019-204334

PATIENT
  Age: 72 Year
  Sex: Female
  Weight: 68 kg

DRUGS (2)
  1. PSYLLIUM HYDROPHILIC MUCILLOID [Suspect]
     Active Substance: PSYLLIUM HUSK
  2. MIRALAX [Suspect]
     Active Substance: POLYETHYLENE GLYCOL 3350
     Indication: DIVERTICULITIS
     Dosage: 1 CAP FILLED TO THE WHITE LINE
     Route: 048
     Dates: start: 20191107, end: 20191109

REACTIONS (5)
  - Feeling abnormal [Recovered/Resolved]
  - Product use in unapproved indication [Unknown]
  - Off label use [Unknown]
  - Product odour abnormal [None]
  - Product taste abnormal [None]

NARRATIVE: CASE EVENT DATE: 201909
